FAERS Safety Report 16531221 (Version 3)
Quarter: 2025Q3

REPORT INFORMATION
  Report Type: Spontaneous
  Country: GB (occurrence: GB)
  Receive Date: 20190705
  Receipt Date: 20250721
  Transmission Date: 20251021
  Serious: Yes (Hospitalization, Other)
  Sender: AUROBINDO
  Company Number: GB-AUROBINDO-AUR-APL-2019-037508

PATIENT
  Age: 12 Year
  Sex: Female

DRUGS (13)
  1. ACETAMINOPHEN [Suspect]
     Active Substance: ACETAMINOPHEN
     Indication: Pain
     Route: 065
  2. ACETAMINOPHEN [Suspect]
     Active Substance: ACETAMINOPHEN
     Dosage: 65 MG/KG, ONCE A DAY
     Route: 042
  3. ACETAMINOPHEN [Suspect]
     Active Substance: ACETAMINOPHEN
     Dosage: 50 MG/KG, ONCE A DAY
     Route: 042
  4. KETAMIN [Suspect]
     Active Substance: KETAMINE
     Indication: Abdominal pain
     Route: 051
  5. KETAMIN [Suspect]
     Active Substance: KETAMINE
     Route: 051
  6. KETAMIN [Suspect]
     Active Substance: KETAMINE
     Route: 040
  7. KETAMIN [Suspect]
     Active Substance: KETAMINE
     Route: 051
  8. KETAMIN [Suspect]
     Active Substance: KETAMINE
     Route: 051
  9. KETAMIN [Suspect]
     Active Substance: KETAMINE
     Route: 051
  10. KETAMIN [Suspect]
     Active Substance: KETAMINE
     Route: 051
  11. KETAMIN [Suspect]
     Active Substance: KETAMINE
     Route: 065
  12. KETAMIN [Suspect]
     Active Substance: KETAMINE
     Route: 065
  13. MORPHINE [Suspect]
     Active Substance: MORPHINE
     Indication: Pain
     Route: 042

REACTIONS (8)
  - Megacolon [Unknown]
  - Malaise [Unknown]
  - Colitis ulcerative [Unknown]
  - Condition aggravated [Unknown]
  - Pallor [Unknown]
  - Lethargy [Unknown]
  - Rectal haemorrhage [Unknown]
  - Drug ineffective [Not Recovered/Not Resolved]
